FAERS Safety Report 20494861 (Version 1)
Quarter: 2022Q1

REPORT INFORMATION
  Report Type: Report from Study
  Country: US (occurrence: US)
  Receive Date: 20220221
  Receipt Date: 20220221
  Transmission Date: 20220423
  Serious: Yes (Death, Hospitalization)
  Sender: FDA-Public Use
  Company Number: US-BoehringerIngelheim-2022-BI-153138

PATIENT
  Age: 63 Year
  Sex: Female
  Weight: 49 kg

DRUGS (17)
  1. AFATINIB [Suspect]
     Active Substance: AFATINIB
     Indication: Neoplasm
     Dosage: CYCLE: 28 DAYSAFATINIB (BIBW 2992): 40 MG PO QD
     Route: 048
     Dates: start: 20160803, end: 20160917
  2. AFATINIB [Suspect]
     Active Substance: AFATINIB
     Indication: Bladder cancer
  3. LORAZEPAM [Suspect]
     Active Substance: LORAZEPAM
     Indication: Nausea
     Dosage: ONGOING
     Route: 048
     Dates: start: 20160810
  4. LORAZEPAM [Suspect]
     Active Substance: LORAZEPAM
     Indication: Anxiety
  5. LORAZEPAM [Suspect]
     Active Substance: LORAZEPAM
     Indication: Insomnia
  6. GABAPENTIN [Suspect]
     Active Substance: GABAPENTIN
     Indication: Neuralgia
     Route: 048
     Dates: start: 20160922
  7. GABAPENTIN [Suspect]
     Active Substance: GABAPENTIN
     Route: 048
     Dates: start: 20160805
  8. GABAPENTIN [Suspect]
     Active Substance: GABAPENTIN
     Route: 048
  9. GABAPENTIN [Suspect]
     Active Substance: GABAPENTIN
     Route: 048
     Dates: start: 20160810
  10. GABAPENTIN [Suspect]
     Active Substance: GABAPENTIN
  11. GABAPENTIN [Suspect]
     Active Substance: GABAPENTIN
     Route: 048
     Dates: start: 20160816
  12. GABAPENTIN [Suspect]
     Active Substance: GABAPENTIN
     Route: 048
  13. OXYCODONE [Suspect]
     Active Substance: OXYCODONE
     Indication: Pain
     Dosage: DURING
     Route: 048
     Dates: start: 20160830
  14. OXYCODONE [Suspect]
     Active Substance: OXYCODONE
     Route: 048
     Dates: start: 20160726
  15. OXYCODONE [Suspect]
     Active Substance: OXYCODONE
     Route: 048
     Dates: start: 20160922, end: 20160924
  16. OXYCODONE [Suspect]
     Active Substance: OXYCODONE
     Route: 048
     Dates: start: 20160925
  17. ROXICODONE [Suspect]
     Active Substance: OXYCODONE HYDROCHLORIDE
     Indication: Pain
     Route: 048
     Dates: start: 20160922

REACTIONS (3)
  - Muscular weakness [Fatal]
  - Fatigue [Not Recovered/Not Resolved]
  - Dehydration [Unknown]

NARRATIVE: CASE EVENT DATE: 20160919
